FAERS Safety Report 5464860-8 (Version None)
Quarter: 2007Q3

REPORT INFORMATION
  Report Type: 
  Country: None (occurrence: None)
  Receive Date: 20070921
  Receipt Date: 20070910
  Transmission Date: 20080115
  Serious: Yes (Other)
  Sender: FDA-Public Use
  Company Number: US-PFIZER INC-2007076122

PATIENT
  Sex: Male
  Weight: 121.4 kg

DRUGS (3)
  1. CHANTIX [Suspect]
     Indication: SMOKING CESSATION THERAPY
  2. LOTREL [Concomitant]
  3. HYDROCODONE BITARTRATE [Concomitant]

REACTIONS (4)
  - BLISTER [None]
  - INSOMNIA [None]
  - RASH [None]
  - RESTLESSNESS [None]
